FAERS Safety Report 6862021-9 (Version None)
Quarter: 2010Q3

REPORT INFORMATION
  Report Type: 
  Country: None (occurrence: None)
  Receive Date: 20100721
  Receipt Date: 20100708
  Transmission Date: 20110219
  Serious: Yes (Other)
  Sender: FDA-Public Use
  Company Number: PHFR2005IE03374

PATIENT
  Sex: Female

DRUGS (6)
  1. CLOZARIL [Suspect]
     Indication: SCHIZOPHRENIA
     Dosage: 425MG DAILY
     Route: 048
     Dates: start: 20040413
  2. CHEMOTHERAPEUTICS,OTHER [Suspect]
     Indication: NON-SMALL CELL LUNG CANCER
     Dosage: UNK
     Route: 065
  3. VALPROATE SODIUM [Suspect]
     Dosage: UNK
  4. CITALOPRAM HYDROBROMIDE [Concomitant]
     Indication: DEPRESSION
     Dosage: 60MG/DAY
     Route: 048
     Dates: start: 20030101
  5. PROPRANOLOL [Concomitant]
     Indication: ANXIETY
     Dosage: 45MG/DAY
     Route: 048
     Dates: start: 20020101
  6. ALIMTA [Concomitant]
     Indication: METASTASES TO BONE

REACTIONS (5)
  - BONE DISORDER [None]
  - NEUTROPHIL COUNT DECREASED [None]
  - NON-SMALL CELL LUNG CANCER [None]
  - THROMBOCYTOPENIA [None]
  - WHITE BLOOD CELL COUNT DECREASED [None]
